FAERS Safety Report 5793107-8 (Version None)
Quarter: 2008Q2

REPORT INFORMATION
  Report Type: 
  Country: None (occurrence: None)
  Receive Date: 20080626
  Receipt Date: 20080626
  Transmission Date: 20081010
  Serious: No
  Sender: FDA-Public Use
  Company Number: None

PATIENT
  Age: 81 Year
  Sex: Male
  Weight: 53 kg

DRUGS (1)
  1. ATORVASTATIN CALCIUM [Suspect]
     Indication: HYPERLIPIDAEMIA
     Dosage: 20 MG EVERY DAY PO
     Route: 048
     Dates: start: 20000420, end: 20080313

REACTIONS (6)
  - ADDISON'S DISEASE [None]
  - COLLAGEN-VASCULAR DISEASE [None]
  - EOSINOPHILIA [None]
  - HYPERSENSITIVITY [None]
  - INFECTION PARASITIC [None]
  - NEOPLASM [None]
